FAERS Safety Report 5199468-5 (Version None)
Quarter: 2006Q4

REPORT INFORMATION
  Report Type: 
  Country: None (occurrence: None)
  Receive Date: 20061229
  Receipt Date: 20061220
  Transmission Date: 20070319
  Serious: Yes (Death)
  Sender: FDA-Public Use
  Company Number: 06-047B

PATIENT
  Sex: Male

DRUGS (11)
  1. LORCET TABLETS 10/650MG (HYDROCODONE BITARTRATE AND ACETAMINOPHEN) [Suspect]
     Indication: PAIN
  2. TALWIN NX [Suspect]
     Indication: PAIN
  3. NORCO [Suspect]
     Indication: PAIN
  4. VICODIN [Suspect]
     Indication: PAIN
  5. LORTAB [Suspect]
     Indication: PAIN
  6. AMBIEN [Suspect]
     Indication: PAIN
  7. TEMAZEPAM [Suspect]
     Indication: PAIN
  8. DALMANE [Suspect]
     Indication: PAIN
  9. RESTORIL [Suspect]
     Indication: PAIN
  10. LIDODERM [Suspect]
     Indication: PAIN
  11. LIDOPAIN (LIDOCAINE) [Suspect]
     Indication: PAIN

REACTIONS (10)
  - ABNORMAL DREAMS [None]
  - AMNESIA [None]
  - ANXIETY [None]
  - CONFUSIONAL STATE [None]
  - DEPRESSION [None]
  - HALLUCINATION [None]
  - MOOD ALTERED [None]
  - NERVOUSNESS [None]
  - SUICIDAL IDEATION [None]
  - VISUAL DISTURBANCE [None]
